FAERS Safety Report 8505402-X (Version None)
Quarter: 2012Q3

REPORT INFORMATION
  Report Type: 
  Country: None (occurrence: None)
  Receive Date: 20120712
  Receipt Date: 20120709
  Transmission Date: 20120928
  Serious: Yes (Other)
  Sender: FDA-Public Use
  Company Number: US-PFIZER INC-2012147869

PATIENT
  Sex: Female
  Weight: 83.9 kg

DRUGS (11)
  1. TRIAMTERENE AND HYDROCHLOROTHIAZIDE [Concomitant]
     Dosage: UNK
  2. ACETAMINOPHEN AND HYDROCODONE BITARTRATE [Concomitant]
     Dosage: UNK
  3. METOPROLOL [Concomitant]
     Indication: HEART RATE INCREASED
     Dosage: UNK
  4. LIPITOR [Concomitant]
     Indication: BLOOD CHOLESTEROL INCREASED
     Dosage: UNK
  5. CARISOPRODOL [Concomitant]
     Dosage: UNK
  6. VISTARIL [Concomitant]
     Dosage: UNK
  7. POTASSIUM [Concomitant]
     Dosage: UNK
  8. LYRICA [Suspect]
     Indication: FIBROMYALGIA
     Dosage: 150 MG, 2X/DAY
     Route: 048
     Dates: start: 20111001, end: 20120601
  9. VISTARIL [Suspect]
     Dosage: UNK
  10. CHANTIX [Suspect]
     Dosage: UNK
  11. LIPITOR [Suspect]
     Dosage: UNK

REACTIONS (10)
  - CHEST PAIN [None]
  - PAIN IN EXTREMITY [None]
  - DYSPNOEA [None]
  - PALPITATIONS [None]
  - ARTHRALGIA [None]
  - MYALGIA [None]
  - GAIT DISTURBANCE [None]
  - PELVIC PAIN [None]
  - COUGH [None]
  - PAIN [None]
